FAERS Safety Report 6816297-4 (Version None)
Quarter: 2010Q3

REPORT INFORMATION
  Report Type: 
  Country: None (occurrence: None)
  Receive Date: 20100705
  Receipt Date: 20100621
  Transmission Date: 20110219
  Serious: Yes (Other)
  Sender: FDA-Public Use
  Company Number: PHHY2010US28176

PATIENT
  Sex: Female

DRUGS (8)
  1. RECLAST [Suspect]
     Indication: OSTEOPENIA
     Dosage: ONCE
     Route: 042
     Dates: start: 20100420
  2. BENADRYL [Concomitant]
  3. METHYLPREDNISOLONE [Concomitant]
  4. ZOCOR [Concomitant]
     Indication: BLOOD CHOLESTEROL INCREASED
     Route: 048
  5. SYNTHROID [Concomitant]
     Indication: HYPOTHYROIDISM
     Route: 048
  6. DIPENTUM [Concomitant]
  7. VITAMINS [Concomitant]
  8. STEROIDS NOS [Concomitant]
     Dosage: UNK

REACTIONS (10)
  - ASPIRATION JOINT [None]
  - CHILLS [None]
  - INFLUENZA LIKE ILLNESS [None]
  - JOINT EFFUSION [None]
  - LIMB DISCOMFORT [None]
  - MALAISE [None]
  - NERVOUSNESS [None]
  - PAIN [None]
  - PRURITUS [None]
  - PYREXIA [None]
